FAERS Safety Report 4463377-7 (Version None)
Quarter: 2004Q3

REPORT INFORMATION
  Report Type: 
  Country: None (occurrence: None)
  Receive Date: 20040928
  Receipt Date: 20040915
  Transmission Date: 20050211
  Serious: Yes (Other)
  Sender: FDA-Public Use
  Company Number: A0525788A

PATIENT
  Age: 41 Year
  Sex: Male

DRUGS (2)
  1. WELLBUTRIN [Suspect]
     Indication: EX-SMOKER
     Dosage: 1 TABLET/PER DAY
     Dates: start: 20000101
  2. WELLBUTRIN XL [Suspect]
     Indication: EX-SMOKER
     Dosage: 150 MG/PER DAY/ORAL
     Route: 048

REACTIONS (7)
  - ANGER [None]
  - DEPRESSION [None]
  - FEELING ABNORMAL [None]
  - HEADACHE [None]
  - HOMICIDAL IDEATION [None]
  - MARKEDLY REDUCED DIETARY INTAKE [None]
  - MEMORY IMPAIRMENT [None]
